FAERS Safety Report 6167378-2 (Version None)
Quarter: 2009Q2

REPORT INFORMATION
  Report Type: 
  Country: None (occurrence: None)
  Receive Date: 20090424
  Receipt Date: 20090415
  Transmission Date: 20091009
  Serious: Yes (Other)
  Sender: FDA-Public Use
  Company Number: CL-ABBOTT-09P-034-0568775-00

PATIENT
  Sex: Female
  Weight: 56 kg

DRUGS (7)
  1. HUMIRA [Suspect]
     Indication: JUVENILE ARTHRITIS
     Route: 058
     Dates: start: 20081015
  2. SULFATE HYDROXYCHLOROQUINE [Concomitant]
     Indication: JUVENILE ARTHRITIS
     Route: 048
     Dates: start: 20040101
  3. METHOTREXATE [Concomitant]
     Indication: JUVENILE ARTHRITIS
     Route: 048
     Dates: start: 20040101
  4. FOLIC ACID [Concomitant]
     Indication: FOLATE DEFICIENCY
     Route: 048
     Dates: start: 20040101
  5. OMEPRAZOLE [Concomitant]
     Indication: PROPHYLAXIS AGAINST GASTROINTESTINAL ULCER
     Route: 048
     Dates: start: 20040101
  6. SODIC NAPROXEN [Concomitant]
     Indication: PAIN
     Dosage: 275MG/SOS
     Route: 048
     Dates: start: 20040101
  7. ETHONOGESTREN/ETINITESTRADIOL [Concomitant]
     Indication: CONTRACEPTION
     Dosage: 11.7/2.7MG MONTHLY
     Route: 067
     Dates: start: 20070101

REACTIONS (3)
  - HAEMATOCHEZIA [None]
  - POLYURIA [None]
  - URINARY TRACT INFECTION [None]
